FAERS Safety Report 5097889-2 (Version None)
Quarter: 2006Q3

REPORT INFORMATION
  Report Type: 
  Country: None (occurrence: None)
  Receive Date: 20060905
  Receipt Date: 20060905
  Transmission Date: 20061208
  Serious: Yes (Hospitalization)
  Sender: FDA-Public Use
  Company Number: None

PATIENT
  Age: 57 Year
  Sex: Male

DRUGS (22)
  1. ETANERCEPT 25 MG [Suspect]
     Indication: PSORIASIS
     Dosage: 25 MG 2XWEEK SQ
     Route: 058
     Dates: start: 20060128, end: 20060705
  2. ETANERCEPT 25 MG [Suspect]
     Indication: PSORIATIC ARTHROPATHY
     Dosage: 25 MG 2XWEEK SQ
     Route: 058
     Dates: start: 20060128, end: 20060705
  3. FESO4 [Concomitant]
  4. FOLIC ACID [Concomitant]
  5. DOCUSATE [Concomitant]
  6. M.V.I. [Concomitant]
  7. HYDROCHLOROTHIAZIDE [Concomitant]
  8. SERTRALINE [Concomitant]
  9. SEROQUEL [Concomitant]
  10. TRIAMCINOLONE CRM [Concomitant]
  11. CALCIPOTRIENE CRM [Concomitant]
  12. ENBREL [Concomitant]
  13. CLONAZEPAM [Concomitant]
  14. GARLIC [Concomitant]
  15. LECITHIN [Concomitant]
  16. MAGNESIUM [Concomitant]
  17. GREEN TEA [Concomitant]
  18. B12 [Concomitant]
  19. FISH OIL [Concomitant]
  20. FLAX SEED OIL [Concomitant]
  21. CRANBERRIES [Concomitant]
  22. GINKO BILOBA [Concomitant]

REACTIONS (4)
  - ARTHRALGIA [None]
  - ESCHERICHIA SEPSIS [None]
  - FLANK PAIN [None]
  - HYPOTENSION [None]
